FAERS Safety Report 4457642-7 (Version None)
Quarter: 2004Q3

REPORT INFORMATION
  Report Type: 
  Country: None (occurrence: None)
  Receive Date: 20040922
  Receipt Date: 20040906
  Transmission Date: 20050211
  Serious: Yes (Hospitalization)
  Sender: FDA-Public Use
  Company Number: 2004-BP-06710BP

PATIENT
  Age: 65 Year
  Sex: Female
  Weight: 70.8 kg

DRUGS (4)
  1. SPIRIVA [Suspect]
     Indication: CHRONIC OBSTRUCTIVE AIRWAYS DISEASE
     Dosage: 18 MCG (18 MCG) IH
     Route: 055
     Dates: start: 20040621, end: 20040727
  2. THEOPHYLLINE [Suspect]
     Indication: CHRONIC OBSTRUCTIVE AIRWAYS DISEASE
     Dosage: PO
     Route: 048
     Dates: start: 20040621, end: 20040709
  3. ADVAIR (SERETIDE MITE) [Concomitant]
  4. SINGULAIR [Concomitant]

REACTIONS (15)
  - ARTHRALGIA [None]
  - BLOOD IMMUNOGLOBULIN E INCREASED [None]
  - CULTURE URINE POSITIVE [None]
  - DYSPNOEA [None]
  - FEELING ABNORMAL [None]
  - FEELING COLD [None]
  - HAEMATURIA [None]
  - HEADACHE [None]
  - HOARSENESS [None]
  - PAIN [None]
  - PRURITUS GENERALISED [None]
  - PYREXIA [None]
  - PYURIA [None]
  - RASH MACULAR [None]
  - RED BLOOD CELL SEDIMENTATION RATE INCREASED [None]
